FAERS Safety Report 8517600-X (Version None)
Quarter: 2012Q2

REPORT INFORMATION
  Report Type: 
  Country: None (occurrence: None)
  Receive Date: 20120406
  Receipt Date: 20090709
  Transmission Date: 20120825
  Serious: Yes (Death)
  Sender: FDA-Public Use
  Company Number: PHEH2009US06791

PATIENT
  Sex: Female

DRUGS (13)
  1. TASIGNA [Suspect]
     Indication: ACUTE LYMPHOCYTIC LEUKAEMIA
     Dosage: 400 MG, BID, ORAL
     Route: 048
     Dates: start: 20090311, end: 20090323
  2. PRILOSEC [Concomitant]
  3. AMBIEN [Concomitant]
  4. MEPRON [Concomitant]
  5. FLUCONAZOLE [Concomitant]
  6. ACYCLOVIR [Concomitant]
  7. PREDNISONE TAB [Concomitant]
  8. LEVOTHYROXINE SODIUM [Concomitant]
  9. ALLOPURINOL [Concomitant]
  10. POTASSIUM (POTASSIUM) [Concomitant]
  11. CIPRO [Concomitant]
  12. NEURONTIN [Concomitant]
  13. VANCOMYCIN [Concomitant]

REACTIONS (11)
  - NEOPLASM MALIGNANT [None]
  - BLAST CELL COUNT INCREASED [None]
  - PNEUMONIA [None]
  - ANAEMIA [None]
  - DEPRESSED LEVEL OF CONSCIOUSNESS [None]
  - NEUTROPENIA [None]
  - THROMBOCYTOPENIA [None]
  - DYSPNOEA [None]
  - LOSS OF CONSCIOUSNESS [None]
  - RALES [None]
  - PYREXIA [None]
